FAERS Safety Report 18147132 (Version 3)
Quarter: 2020Q4

REPORT INFORMATION
  Report Type: Spontaneous
  Country: US (occurrence: US)
  Receive Date: 20200813
  Receipt Date: 20201008
  Transmission Date: 20210113
  Serious: No
  Sender: FDA-Public Use
  Company Number: US-PFIZER INC-2020304778

PATIENT
  Age: 13 Year
  Sex: Male
  Weight: 57.15 kg

DRUGS (2)
  1. GENOTROPIN [Suspect]
     Active Substance: SOMATROPIN
     Indication: GROWTH HORMONE DEFICIENCY
     Dosage: 2 MG, DAILY
     Dates: start: 202004
  2. GENOTROPIN [Suspect]
     Active Substance: SOMATROPIN
     Dosage: 2 MG, 1X/DAY AT NIGHT
     Dates: start: 2020

REACTIONS (6)
  - Device information output issue [Unknown]
  - Drug dose omission by device [Unknown]
  - Device issue [Unknown]
  - Wrong technique in device usage process [Unknown]
  - Poor quality device used [Unknown]
  - Device leakage [Unknown]

NARRATIVE: CASE EVENT DATE: 20200929
